FAERS Safety Report 4712319-5 (Version None)
Quarter: 2005Q3

REPORT INFORMATION
  Report Type: 
  Country: None (occurrence: None)
  Receive Date: 20050711
  Receipt Date: 20050628
  Transmission Date: 20060218
  Serious: Yes (Hospitalization, Other)
  Sender: FDA-Public Use
  Company Number: 2005075746

PATIENT
  Sex: Male

DRUGS (9)
  1. BEXTRA [Suspect]
     Indication: ARTHRITIS
     Dosage: 20 MG (20 MG, 1 IN 1 D), ORAL
     Route: 048
     Dates: start: 20020101
  2. DILANTIN [Concomitant]
  3. MONTELUKAST [Concomitant]
  4. POTASSIUM CHLORIDE [Concomitant]
  5. NEURONTIN [Concomitant]
  6. PREVACID [Concomitant]
  7. LASIX [Concomitant]
  8. DYAZIDE [Concomitant]
  9. NORVASC [Concomitant]

REACTIONS (12)
  - ASTHENIA [None]
  - BACTERIAL INFECTION [None]
  - CARDIAC ENZYMES INCREASED [None]
  - CHEST PAIN [None]
  - GASTRIC PH DECREASED [None]
  - HEART RATE INCREASED [None]
  - LUNG INFECTION [None]
  - MYOCARDIAL INFARCTION [None]
  - PAIN [None]
  - PSEUDOMONAS INFECTION [None]
  - STAPHYLOCOCCAL INFECTION [None]
  - STOMACH DISCOMFORT [None]
